FAERS Safety Report 10183488 (Version 1)
Quarter: 2014Q2

REPORT INFORMATION
  Report Type: Spontaneous
  Country: RS (occurrence: RS)
  Receive Date: 20140520
  Receipt Date: 20140520
  Transmission Date: 20141212
  Serious: Yes (Other)
  Sender: FDA-Public Use
  Company Number: PHHY2014RS058025

PATIENT
  Age: 45 Year
  Sex: Female

DRUGS (3)
  1. DOCETAXEL [Suspect]
     Indication: NEOPLASM
     Dosage: 100 ML, UNK
     Route: 051
  2. DEXASON [Concomitant]
     Indication: PROPHYLACTIC CHEMOTHERAPY
     Dosage: 4 MG, UNK
     Route: 042
  3. RANIDIN [Concomitant]
     Indication: PROPHYLACTIC CHEMOTHERAPY
     Route: 042

REACTIONS (4)
  - Hyperthermia [Recovered/Resolved]
  - Laryngospasm [Recovered/Resolved]
  - Hallucination, visual [Recovered/Resolved]
  - Back pain [Recovered/Resolved]
